FAERS Safety Report 9414508 (Version 2)
Quarter: 2013Q4

REPORT INFORMATION
  Report Type: Report from Study
  Country: DE (occurrence: DE)
  Receive Date: 20130723
  Receipt Date: 20131022
  Transmission Date: 20140711
  Serious: Yes (Hospitalization)
  Sender: FDA-Public Use
  Company Number: DE-AMGEN-DEUCT2013049947

PATIENT
  Age: 62 Year
  Sex: Male
  Weight: 73 kg

DRUGS (7)
  1. PANITUMUMAB [Suspect]
     Indication: OESOPHAGEAL SQUAMOUS CELL CARCINOMA
     Dosage: 684 MG, UNK
     Route: 042
     Dates: start: 20130705
  2. CISPLATIN [Concomitant]
     Indication: OESOPHAGEAL SQUAMOUS CELL CARCINOMA METASTATIC
     Dosage: 193 MG, UNK
     Route: 042
     Dates: start: 20130705
  3. 5-FU [Concomitant]
     Indication: OESOPHAGEAL SQUAMOUS CELL CARCINOMA METASTATIC
     Dosage: 7720 MG, UNK
     Route: 042
     Dates: start: 20130705
  4. SIMVASTATIN [Concomitant]
     Indication: BLOOD CHOLESTEROL INCREASED
     Dosage: 30 MG, QD
     Route: 048
     Dates: start: 20130705
  5. ASS [Concomitant]
     Indication: ANTICOAGULANT THERAPY
     Dosage: 100 MG, QD
     Route: 048
     Dates: end: 20130707
  6. FRAXIPARINE                        /01437701/ [Concomitant]
     Indication: ANTICOAGULANT THERAPY
     Dosage: 0.3 ML, QD
     Route: 058
     Dates: end: 20130707
  7. PANTOZOL                           /01263204/ [Concomitant]
     Indication: GASTRIC DISORDER
     Dosage: 40 MG, QD

REACTIONS (1)
  - Diarrhoea [Recovered/Resolved]
